FAERS Safety Report 9402767 (Version 1)
Quarter: 2013Q3

REPORT INFORMATION
  Report Type: Spontaneous
  Country: US (occurrence: None)
  Receive Date: 20130715
  Receipt Date: 20130715
  Transmission Date: 20140515
  Serious: Yes (Hospitalization)
  Sender: FDA-Public Use
  Company Number: None

PATIENT
  Age: 58 Year
  Sex: Female
  Weight: 67.4 kg

DRUGS (2)
  1. SOTRADECOL [Suspect]
     Indication: VARICOSE VEIN
     Dates: start: 20130528, end: 20130528
  2. SOTRADECOL [Suspect]
     Indication: VARICOPHLEBITIS
     Dates: start: 20130528, end: 20130528

REACTIONS (2)
  - Abscess limb [None]
  - Post procedural complication [None]
